FAERS Safety Report 4312532-5 (Version None)
Quarter: 2004Q1

REPORT INFORMATION
  Report Type: 
  Country: None (occurrence: None)
  Receive Date: 20040302
  Receipt Date: 20031114
  Transmission Date: 20041129
  Serious: No
  Sender: FDA-Public Use
  Company Number: 701318

PATIENT
  Age: 79 Year
  Sex: Female

DRUGS (6)
  1. AMEVIVE [Suspect]
     Indication: PSORIASIS
     Dosage: 15 MG QW IM
     Route: 030
     Dates: start: 20031024
  2. NORVASC [Concomitant]
  3. OSCAL [Concomitant]
  4. PREMARIN [Concomitant]
  5. THYROID MEDICATION [Concomitant]
  6. HIGH BLOOD PRESSURE MEDICATION [Concomitant]

REACTIONS (2)
  - OEDEMA PERIPHERAL [None]
  - PAIN IN EXTREMITY [None]
